FAERS Safety Report 21766701 (Version 1)
Quarter: 2022Q4

REPORT INFORMATION
  Report Type: Spontaneous
  Country: CN (occurrence: CN)
  Receive Date: 20221222
  Receipt Date: 20221222
  Transmission Date: 20230113
  Serious: Yes (Hospitalization)
  Sender: FDA-Public Use
  Company Number: CN-PFIZER INC-PV202200128479

PATIENT
  Age: 71 Year
  Sex: Male
  Weight: 55 kg

DRUGS (4)
  1. METHYLPREDNISOLONE [Suspect]
     Active Substance: METHYLPREDNISOLONE
     Indication: Vasculitis
     Dosage: 18 MG, 1X/DAY
     Route: 048
     Dates: start: 20221014, end: 20221212
  2. PREDNISONE ACETATE [Suspect]
     Active Substance: PREDNISONE ACETATE
     Indication: Vasculitis
     Dosage: 50 MG, 1X/DAY
     Route: 048
     Dates: start: 20220917, end: 20221013
  3. METHOTREXATE [Suspect]
     Active Substance: METHOTREXATE
     Indication: Vasculitis
     Dosage: 10 MG, WEEKLY
     Route: 048
     Dates: start: 20221112, end: 20221212
  4. HERBALS [Suspect]
     Active Substance: HERBALS
     Indication: Vasculitis
     Dosage: 20 MG, 3X/DAY
     Route: 048
     Dates: start: 20221112, end: 20221212

REACTIONS (2)
  - Pneumonia [Recovering/Resolving]
  - Off label use [Recovered/Resolved]

NARRATIVE: CASE EVENT DATE: 20221014
